FAERS Safety Report 4848533-8 (Version None)
Quarter: 2005Q4

REPORT INFORMATION
  Report Type: 
  Country: None (occurrence: None)
  Receive Date: 20051206
  Receipt Date: 20051123
  Transmission Date: 20060501
  Serious: Yes (Other)
  Sender: FDA-Public Use
  Company Number: 2005150158

PATIENT
  Age: 65 Year
  Sex: Female
  Weight: 81.6475 kg

DRUGS (2)
  1. XALATAN [Suspect]
     Indication: GLAUCOMA
     Dosage: 1 DROP IN LEFT EYE AT NIGHT (1 DROP), OPHTHALMIC
     Route: 047
     Dates: start: 20050101
  2. ESTROGENS SOL/INJ [Concomitant]

REACTIONS (3)
  - EYE PAIN [None]
  - OSTEOPOROSIS [None]
  - POOR QUALITY DRUG ADMINISTERED [None]
